FAERS Safety Report 7302841-X (Version None)
Quarter: 2011Q1

REPORT INFORMATION
  Report Type: 
  Country: None (occurrence: None)
  Receive Date: 20110218
  Receipt Date: 20110131
  Transmission Date: 20110831
  Serious: Yes (Other)
  Sender: FDA-Public Use
  Company Number: PHHY2010US75538

PATIENT
  Sex: Female

DRUGS (7)
  1. EXTAVIA [Suspect]
     Dosage: 0.25 MG, QOD
     Route: 058
     Dates: start: 20100603
  2. BUPROPION [Concomitant]
     Dosage: 300 MG, QD
     Route: 048
  3. TOPAMAX [Concomitant]
     Dosage: 200 MG, QD
     Route: 048
  4. VERSED [Suspect]
  5. INSULIN [Concomitant]
     Dosage: UNK
     Route: 058
  6. EXTAVIA [Suspect]
     Indication: MULTIPLE SCLEROSIS
     Dosage: 0.3 MG, QOD
     Route: 058
     Dates: start: 20100428
  7. SERTRALINE HYDROCHLORIDE [Concomitant]
     Dosage: 100 MG, QD
     Route: 048

REACTIONS (8)
  - NAUSEA [None]
  - ARTHRALGIA [None]
  - MUSCULOSKELETAL DISCOMFORT [None]
  - INFECTION [None]
  - SCIATICA [None]
  - MALAISE [None]
  - GASTROENTERITIS VIRAL [None]
  - HEADACHE [None]
